FAERS Safety Report 24454055 (Version 2)
Quarter: 2024Q4

REPORT INFORMATION
  Report Type: Report from Study
  Country: US (occurrence: US)
  Receive Date: 20241017
  Receipt Date: 20241018
  Transmission Date: 20250115
  Serious: No
  Sender: ROCHE
  Company Number: US-ROCHE-3425918

PATIENT
  Age: 70 Year
  Sex: Female

DRUGS (1)
  1. RITUXAN [Suspect]
     Active Substance: RITUXIMAB
     Indication: Scleritis
     Dosage: INFUSE 1000MG, 2 DOSES 2 WEEKS APART, EVERY 6 MONTH, STRENGTH: 10MG/ML? FREQUENCY TEXT:DAY(S) 1 AND
     Route: 041

REACTIONS (3)
  - Product prescribing error [Unknown]
  - No adverse event [Unknown]
  - Off label use [Unknown]
